FAERS Safety Report 10480623 (Version 1)
Quarter: 2014Q3

REPORT INFORMATION
  Report Type: Spontaneous
  Country: US (occurrence: None)
  Receive Date: 20140926
  Receipt Date: 20140926
  Transmission Date: 20150326
  Serious: Yes (Hospitalization)
  Sender: FDA-Public Use
  Company Number: None

PATIENT
  Age: 15 Year
  Sex: Female
  Weight: 75.3 kg

DRUGS (7)
  1. CYCLOPHOSPHAMIDE. [Suspect]
     Active Substance: CYCLOPHOSPHAMIDE
     Dates: end: 20140812
  2. CYTARABINE. [Suspect]
     Active Substance: CYTARABINE
     Dates: end: 20140822
  3. DEXAMETHASONE. [Suspect]
     Active Substance: DEXAMETHASONE
     Dates: end: 20140728
  4. METHOTREXATE [Suspect]
     Active Substance: METHOTREXATE
     Dates: end: 20140819
  5. THIOGUANINE [Suspect]
     Active Substance: THIOGUANINE
     Dates: end: 20140825
  6. DOXORUBICIN HYDROCHLORIDE. [Suspect]
     Active Substance: DOXORUBICIN HYDROCHLORIDE
     Dates: end: 20140722
  7. PEG-L-ASPARAGINASE [Suspect]
     Active Substance: PEGASPARGASE
     Dates: end: 20140826

REACTIONS (11)
  - Empyema [None]
  - Hypotension [None]
  - Tachypnoea [None]
  - Blood culture positive [None]
  - Klebsiella infection [None]
  - Diabetic ketoacidosis [None]
  - Pleural effusion [None]
  - Haematemesis [None]
  - Pneumonia necrotising [None]
  - Haematuria [None]
  - Rhinovirus infection [None]

NARRATIVE: CASE EVENT DATE: 20140828
